FAERS Safety Report 5530693-7 (Version None)
Quarter: 2007Q4

REPORT INFORMATION
  Report Type: 
  Country: None (occurrence: None)
  Receive Date: 20071128
  Receipt Date: 20071128
  Transmission Date: 20080405
  Serious: Yes (Hospitalization)
  Sender: FDA-Public Use
  Company Number: None

PATIENT
  Sex: Female
  Weight: 75.5 kg

DRUGS (5)
  1. UNISOM [Suspect]
     Indication: OVERDOSE
     Dosage: 70 PILLS ONCE
     Dates: start: 20071014
  2. ADVIL PM [Suspect]
     Dosage: 70 PILLS ONCE
     Dates: start: 20071014
  3. DEPAKOTE [Concomitant]
  4. RISPERIDONE [Concomitant]
  5. MOTRIN [Concomitant]

REACTIONS (4)
  - ELECTROCARDIOGRAM QT PROLONGED [None]
  - HEART RATE INCREASED [None]
  - INCORRECT DOSE ADMINISTERED [None]
  - URINARY RETENTION [None]
